FAERS Safety Report 7114739-0 (Version None)
Quarter: 2010Q4

REPORT INFORMATION
  Report Type: 
  Country: None (occurrence: None)
  Receive Date: 20101122
  Receipt Date: 20101110
  Transmission Date: 20110411
  Serious: No
  Sender: FDA-Public Use
  Company Number: US-BIOGENIDEC-2010BI019582

PATIENT
  Age: 36 Year
  Sex: Male

DRUGS (1)
  1. TYSABRI [Suspect]
     Indication: MULTIPLE SCLEROSIS
     Route: 042
     Dates: start: 20060828

REACTIONS (10)
  - BACK DISORDER [None]
  - BALANCE DISORDER [None]
  - CENTRAL NERVOUS SYSTEM LESION [None]
  - DRUG INEFFECTIVE [None]
  - DYSSTASIA [None]
  - FATIGUE [None]
  - GAIT DISTURBANCE [None]
  - MOTOR DYSFUNCTION [None]
  - MUSCULAR WEAKNESS [None]
  - MUSCULOSKELETAL STIFFNESS [None]
